FAERS Safety Report 6124279-3 (Version None)
Quarter: 2009Q1

REPORT INFORMATION
  Report Type: 
  Country: None (occurrence: None)
  Receive Date: 20090317
  Receipt Date: 20090306
  Transmission Date: 20090719
  Serious: Yes (Other)
  Sender: FDA-Public Use
  Company Number: 2009SP005027

PATIENT
  Age: 67 Year
  Sex: Male

DRUGS (1)
  1. INTRON A [Suspect]
     Indication: DRUG USE FOR UNKNOWN INDICATION

REACTIONS (3)
  - BENCE JONES PROTEIN URINE PRESENT [None]
  - PROTEIN URINE PRESENT [None]
  - RASH [None]
